FAERS Safety Report 10034815 (Version 3)
Quarter: 2014Q1

REPORT INFORMATION
  Report Type: Report from Study
  Country: BR (occurrence: BR)
  Receive Date: 20140325
  Receipt Date: 20140328
  Transmission Date: 20141002
  Serious: Yes (Other)
  Sender: FDA-Public Use
  Company Number: BR-VERTEX PHARMACEUTICALS INC-2014-001493

PATIENT
  Age: 57 Year
  Sex: Female

DRUGS (8)
  1. VX-950 (TELAPREVIR) [Suspect]
     Indication: CHRONIC HEPATITIS C
     Dosage: 1 DF, TID
     Route: 048
     Dates: start: 20130918, end: 20131004
  2. Z-PEGYLATED INTERFERON-2A [Suspect]
     Indication: CHRONIC HEPATITIS C
     Dosage: UNK, QW
     Route: 058
     Dates: start: 20130918, end: 20131004
  3. PEGINTERFERON LAMBDA-1A [Suspect]
     Indication: CHRONIC HEPATITIS C
     Dosage: UNK, QW
     Route: 058
     Dates: start: 20130918, end: 20131004
  4. Z-RIBAVIRIN [Suspect]
     Indication: CHRONIC HEPATITIS C
     Dosage: 1 DF, BID
     Route: 048
     Dates: start: 20130918, end: 20131004
  5. PURAN T4 [Concomitant]
     Indication: PRODUCT USED FOR UNKNOWN INDICATION
     Dosage: UNK
     Route: 065
  6. OMEPRAZOLE [Concomitant]
     Indication: PRODUCT USED FOR UNKNOWN INDICATION
     Dosage: 40 MG, UNK
     Route: 048
     Dates: start: 20130921
  7. ONDANSETRON [Concomitant]
     Indication: PRODUCT USED FOR UNKNOWN INDICATION
     Dosage: UNK, BID
     Route: 065
     Dates: start: 20130930
  8. DOMPERIDONE [Concomitant]
     Indication: PRODUCT USED FOR UNKNOWN INDICATION
     Dosage: 10 MG, BID
     Route: 048
     Dates: start: 20130930

REACTIONS (1)
  - Hypertransaminasaemia [Recovered/Resolved]
